FAERS Safety Report 21347016 (Version 1)
Quarter: 2022Q3

REPORT INFORMATION
  Report Type: Spontaneous
  Country: US (occurrence: US)
  Receive Date: 20220918
  Receipt Date: 20220918
  Transmission Date: 20221026
  Serious: Yes (Other)
  Sender: FDA-Public Use
  Company Number: US-NOVARTISPH-NVSC2022US207420

PATIENT
  Age: 52 Year
  Sex: Male

DRUGS (10)
  1. CARBOPLATIN [Suspect]
     Active Substance: CARBOPLATIN
     Indication: Prostate cancer stage IV
     Dosage: UNK, CYCLIC (2 CYCLES)
     Route: 042
  2. CARBOPLATIN [Suspect]
     Active Substance: CARBOPLATIN
     Indication: Metastases to lymph nodes
  3. CARBOPLATIN [Suspect]
     Active Substance: CARBOPLATIN
     Indication: Metastases to liver
  4. CARBOPLATIN [Suspect]
     Active Substance: CARBOPLATIN
     Indication: Metastases to bone
  5. CARBOPLATIN [Suspect]
     Active Substance: CARBOPLATIN
     Indication: Metastases to lymph nodes
  6. CABAZITAXEL [Suspect]
     Active Substance: CABAZITAXEL
     Indication: Prostate cancer stage IV
     Dosage: UNK, CYCLIC (2 CYCLES)
     Route: 042
  7. CABAZITAXEL [Suspect]
     Active Substance: CABAZITAXEL
     Indication: Metastases to lymph nodes
  8. CABAZITAXEL [Suspect]
     Active Substance: CABAZITAXEL
     Indication: Metastases to liver
  9. CABAZITAXEL [Suspect]
     Active Substance: CABAZITAXEL
     Indication: Metastases to bone
  10. CABAZITAXEL [Suspect]
     Active Substance: CABAZITAXEL
     Indication: Metastases to lymph nodes

REACTIONS (3)
  - Prostate cancer stage IV [Unknown]
  - Malignant neoplasm progression [Unknown]
  - Product use in unapproved indication [Unknown]
